FAERS Safety Report 4849223-8 (Version None)
Quarter: 2005Q4

REPORT INFORMATION
  Report Type: 
  Country: None (occurrence: None)
  Receive Date: 20051209
  Receipt Date: 20051130
  Transmission Date: 20060501
  Serious: Yes (Other)
  Sender: FDA-Public Use
  Company Number: JP-BRISTOL-MYERS SQUIBB COMPANY-13204599

PATIENT

DRUGS (1)
  1. KENACORT-A [Suspect]
     Indication: EYE OPERATION
     Route: 031

REACTIONS (1)
  - ENDOPHTHALMITIS [None]
